FAERS Safety Report 16039420 (Version 1)
Quarter: 2019Q1

REPORT INFORMATION
  Report Type: Spontaneous
  Country: SE (occurrence: SE)
  Receive Date: 20190306
  Receipt Date: 20190306
  Transmission Date: 20190418
  Serious: Yes (Hospitalization)
  Sender: FDA-Public Use
  Company Number: SE-TEVA-2019-SE-1018514

PATIENT
  Sex: Male

DRUGS (3)
  1. LORATADINE. [Suspect]
     Active Substance: LORATADINE
     Dosage: 30 ST
     Route: 048
     Dates: start: 20170604, end: 20170604
  2. PRONAXEN [Suspect]
     Active Substance: NAPROXEN
     Dosage: 10 PRONAXEN 500 MG
     Dates: start: 20170604, end: 20170604
  3. COCILLANA-ETYFIN [Suspect]
     Active Substance: ETHYLMORPHINE HYDROCHLORIDE\HERBALS
     Dosage: ^0.5 BOTTLE UNCLEAR WHICH BOTTLE ^
     Route: 048
     Dates: start: 20170604, end: 20170604

REACTIONS (2)
  - Intentional self-injury [Unknown]
  - Intentional overdose [Unknown]

NARRATIVE: CASE EVENT DATE: 20170604
